FAERS Safety Report 5917526-1 (Version None)
Quarter: 2008Q4

REPORT INFORMATION
  Report Type: 
  Country: None (occurrence: None)
  Receive Date: 20081009
  Receipt Date: 20080926
  Transmission Date: 20090506
  Serious: Yes (Death, Hospitalization)
  Sender: FDA-Public Use
  Company Number: 2008AL010979

PATIENT
  Age: 80 Year
  Sex: Male

DRUGS (6)
  1. AMLODIPINE BESYLATE [Suspect]
     Indication: ESSENTIAL HYPERTENSION
     Dosage: 5 MG; QD; PO
     Route: 048
     Dates: end: 20080714
  2. HYDROCHLOROTHIAZIDE [Concomitant]
  3. RIVASTIGMINE TARTRATE [Concomitant]
  4. TOLTERODINE [Concomitant]
  5. PROPIOMAZINE [Concomitant]
  6. ATENOLOL [Concomitant]

REACTIONS (4)
  - GENERAL PHYSICAL HEALTH DETERIORATION [None]
  - MUSCLE SPASMS [None]
  - PANCREATITIS NECROTISING [None]
  - RESPIRATORY FAILURE [None]
